FAERS Safety Report 15743392 (Version 3)
Quarter: 2019Q2

REPORT INFORMATION
  Report Type: Spontaneous
  Country: BE (occurrence: BE)
  Receive Date: 20181220
  Receipt Date: 20190523
  Transmission Date: 20190711
  Serious: Yes (Other)
  Sender: FDA-Public Use
  Company Number: BE-PFIZER INC-2018519696

PATIENT
  Age: 52 Year
  Sex: Female
  Weight: 82 kg

DRUGS (11)
  1. BACTRIM [Suspect]
     Active Substance: SULFAMETHOXAZOLE\TRIMETHOPRIM
     Dosage: UNK
  2. DARAPRIM [Suspect]
     Active Substance: PYRIMETHAMINE
     Indication: TOXOPLASMOSIS
     Dosage: 50 MG, 1X/DAY
  3. AZITHROMYCINE [Concomitant]
     Active Substance: AZITHROMYCIN
     Indication: OPPORTUNISTIC INFECTION PROPHYLAXIS
     Dosage: 250 MG, UNK
     Route: 048
     Dates: start: 20181031
  4. BIKTARVY [Concomitant]
     Active Substance: BICTEGRAVIR SODIUM\EMTRICITABINE\TENOFOVIR ALAFENAMIDE FUMARATE
     Dosage: UNK
     Dates: start: 20190311
  5. SULFADIAZINE. [Suspect]
     Active Substance: SULFADIAZINE
     Indication: TOXOPLASMOSIS
     Dosage: UNK
     Dates: start: 20181031, end: 20181107
  6. ELVORINE [Concomitant]
     Active Substance: LEUCOVORIN CALCIUM
     Indication: PROPHYLAXIS
     Dosage: 7.5 MG, 2X/DAY
     Dates: start: 20181031
  7. DAPSONE. [Concomitant]
     Active Substance: DAPSONE
     Dosage: 200 MG, WEEKLY
     Dates: start: 20181220
  8. BEFACT [CYANOCOBALAMIN;PYRIDOXINE HYDROCHLORIDE;RIBOFLAVIN;THIAMINE MO [Concomitant]
     Active Substance: CYANOCOBALAMIN\PYRIDOXINE\RIBOFLAVIN\THIAMINE
     Indication: VITAMIN SUPPLEMENTATION
     Dosage: UNK
     Route: 048
  9. DARAPRIM [Suspect]
     Active Substance: PYRIMETHAMINE
     Dosage: 25 MG, 1X/DAY
  10. DARAPRIM [Suspect]
     Active Substance: PYRIMETHAMINE
     Dosage: 75 MG, 1X/DAY
     Dates: start: 20181031
  11. SYMTUZA [Concomitant]
     Active Substance: COBICISTAT\DARUNAVIR\EMTRICITABINE\TENOFOVIR ALAFENAMIDE
     Indication: LYMPHOCYTE ADOPTIVE THERAPY
     Dosage: UNK
     Route: 048
     Dates: start: 20181128, end: 20190311

REACTIONS (4)
  - Leukopenia [Recovering/Resolving]
  - Rash [Recovering/Resolving]
  - Neutropenia [Recovering/Resolving]
  - Bone marrow toxicity [Unknown]

NARRATIVE: CASE EVENT DATE: 20181105
